FAERS Safety Report 8996079 (Version 1)
Quarter: 2013Q1

REPORT INFORMATION
  Report Type: Spontaneous
  Country: US (occurrence: US)
  Receive Date: 20130103
  Receipt Date: 20130103
  Transmission Date: 20140127
  Serious: No
  Sender: FDA-Public Use
  Company Number: US-PFIZER INC-2013002328

PATIENT
  Age: 52 Year
  Sex: Female
  Weight: 50.79 kg

DRUGS (3)
  1. LYRICA [Suspect]
     Indication: PAIN
     Dosage: 75 MG, 2X/DAY
     Dates: start: 201111
  2. LYRICA [Suspect]
     Indication: NERVE INJURY
     Dosage: 175 MG, 3X/DAY
  3. LYRICA [Suspect]
     Indication: FIBROMYALGIA

REACTIONS (1)
  - Calcinosis [Unknown]
